FAERS Safety Report 18201791 (Version 1)
Quarter: 2020Q3

REPORT INFORMATION
  Report Type: Spontaneous
  Country: US (occurrence: US)
  Receive Date: 20200826
  Receipt Date: 20200826
  Transmission Date: 20201103
  Serious: Yes (Hospitalization, Disabling)
  Sender: FDA-Public Use
  Company Number: None

PATIENT
  Age: 86 Year
  Sex: Female
  Weight: 60.3 kg

DRUGS (9)
  1. CELEXA [Concomitant]
     Active Substance: CITALOPRAM HYDROBROMIDE
  2. DIAZIDE [Concomitant]
  3. SINEMET [Concomitant]
     Active Substance: CARBIDOPA\LEVODOPA
  4. LEVOTHYROXINE. [Concomitant]
     Active Substance: LEVOTHYROXINE
  5. AMANTADINE HCL [Suspect]
     Active Substance: AMANTADINE HYDROCHLORIDE
     Indication: PARKINSONIAN REST TREMOR
     Dosage: ?          QUANTITY:90 CAPSULE(S);?
     Route: 048
     Dates: start: 20200721, end: 20200730
  6. SIMVASTATIN. [Concomitant]
     Active Substance: SIMVASTATIN
  7. PRESERVISION AREDS WITH LUTEIN [Concomitant]
  8. IRON [Concomitant]
     Active Substance: IRON
  9. BABY ASPIRIN [Concomitant]
     Active Substance: ASPIRIN

REACTIONS (7)
  - Hyponatraemia [None]
  - Mental impairment [None]
  - Gait disturbance [None]
  - Nausea [None]
  - Confusional state [None]
  - Loss of personal independence in daily activities [None]
  - Hypophagia [None]

NARRATIVE: CASE EVENT DATE: 20200808
